FAERS Safety Report 8914435 (Version 3)
Quarter: 2013Q2

REPORT INFORMATION
  Report Type: Spontaneous
  Country: US (occurrence: US)
  Receive Date: 20121117
  Receipt Date: 20130405
  Transmission Date: 20140414
  Serious: No
  Sender: FDA-Public Use
  Company Number: US-009507513-1211USA005777

PATIENT
  Age: 62 Year
  Sex: Female

DRUGS (1)
  1. AZASITE [Suspect]
     Dosage: ONE DROP IN BOTH EYES, TID
     Route: 047

REACTIONS (3)
  - Drug dose omission [Unknown]
  - Product quality issue [Unknown]
  - No adverse event [Unknown]
